FAERS Safety Report 17348248 (Version 1)
Quarter: 2020Q1

REPORT INFORMATION
  Report Type: Spontaneous
  Country: US (occurrence: US)
  Receive Date: 20200130
  Receipt Date: 20200130
  Transmission Date: 20200409
  Serious: No
  Sender: FDA-Public Use
  Company Number: US-PFIZER INC-2020039887

PATIENT
  Age: 58 Year
  Sex: Female
  Weight: 59.86 kg

DRUGS (4)
  1. XELJANZ [Suspect]
     Active Substance: TOFACITINIB CITRATE
     Indication: COLITIS ULCERATIVE
     Dosage: 10 MG, 2X/DAY ((TAKE 1 TABLET TWICE A DAY)
     Route: 048
     Dates: start: 20191008
  2. CALCIUM CARBONATE. [Concomitant]
     Active Substance: CALCIUM CARBONATE
     Dosage: UNK
  3. VITAMIN B12 [Concomitant]
     Active Substance: CYANOCOBALAMIN
     Dosage: UNK
  4. TREXALL [Concomitant]
     Active Substance: METHOTREXATE SODIUM
     Dosage: UNK

REACTIONS (6)
  - Nasal congestion [Unknown]
  - Headache [Unknown]
  - Oropharyngeal pain [Unknown]
  - Influenza [Unknown]
  - Infection [Unknown]
  - Rhinorrhoea [Unknown]
